FAERS Safety Report 4389619-4 (Version None)
Quarter: 2004Q3

REPORT INFORMATION
  Report Type: 
  Country: None (occurrence: None)
  Receive Date: 20040702
  Receipt Date: 20040623
  Transmission Date: 20050211
  Serious: Yes (Death, Other)
  Sender: FDA-Public Use
  Company Number: DE-MERCK-0406DEU00174

PATIENT
  Age: 13 Year
  Sex: Male

DRUGS (4)
  1. CHOLESTEROL AND DISTEAROYLPHOSPHATIDYLGLYCEROL AND VITAMIN E AND AMPHO [Concomitant]
     Route: 065
  2. CANCIDAS [Suspect]
     Indication: BRONCHOPULMONARY ASPERGILLOSIS
     Route: 042
  3. VORICONAZOLE [Concomitant]
     Route: 042
  4. VORICONAZOLE [Concomitant]
     Route: 042

REACTIONS (2)
  - ACUTE RESPIRATORY DISTRESS SYNDROME [None]
  - THERAPY NON-RESPONDER [None]
